FAERS Safety Report 6257976-X (Version None)
Quarter: 2009Q3

REPORT INFORMATION
  Report Type: 
  Country: None (occurrence: None)
  Receive Date: 20090707
  Receipt Date: 20090624
  Transmission Date: 20100115
  Serious: Yes (Hospitalization)
  Sender: FDA-Public Use
  Company Number: FR-ELI_LILLY_AND_COMPANY-FR200906005621

PATIENT
  Sex: Male
  Weight: 75 kg

DRUGS (11)
  1. PEMETREXED [Suspect]
     Indication: NON-SMALL CELL LUNG CANCER
     Dosage: 500 MG/M2, UNKNOWN
     Route: 042
     Dates: start: 20090526
  2. CISPLATIN [Suspect]
     Indication: NON-SMALL CELL LUNG CANCER
     Dosage: 75 MG/M2, ON D1 CYCLICAL
     Route: 042
     Dates: start: 20090526
  3. XANAX [Concomitant]
     Dosage: 0.25 MG, EACH EVENING
  4. HAVLANE [Concomitant]
     Dosage: 1 D/F, EACH EVENING
  5. NEXIUM [Concomitant]
     Dosage: 20 MG, EACH EVENING
  6. LYTOS [Concomitant]
     Dosage: 540 MG, 2/D
  7. VOLTARENE /00372302/ [Concomitant]
     Dosage: 100 MG, DAILY (1/D)
  8. SKENAN [Concomitant]
     Dosage: 60 MG, 2/D
  9. ACTISKENAN [Concomitant]
     Dosage: 1 D/F, AS NEEDED
  10. LOVENOX [Concomitant]
     Dosage: 0.7 ML, 2/D
  11. OXYGEN [Concomitant]
     Dosage: 1 LITER/MIN FOR 18-24HRS, UNK

REACTIONS (2)
  - ASTHENIA [None]
  - DYSPNOEA [None]
